FAERS Safety Report 22930463 (Version 3)
Quarter: 2023Q4

REPORT INFORMATION
  Report Type: Spontaneous
  Country: US (occurrence: US)
  Receive Date: 20230911
  Receipt Date: 20231002
  Transmission Date: 20240109
  Serious: No
  Sender: FDA-Public Use
  Company Number: US-PFIZER INC-202300295392

PATIENT
  Age: 62 Year
  Sex: Male
  Weight: 113.38 kg

DRUGS (6)
  1. PAXLOVID [Suspect]
     Active Substance: NIRMATRELVIR\RITONAVIR
     Indication: COVID-19 treatment
     Dosage: TWICE DAILY FOR 5 DAYS
     Dates: start: 20230905
  2. LOSARTAN [Concomitant]
     Active Substance: LOSARTAN
     Indication: Blood pressure abnormal
     Dosage: TAKE EVERY MORNING
  3. OMEPRAZOLE [Concomitant]
     Active Substance: OMEPRAZOLE
     Indication: Gastrooesophageal reflux disease
     Dosage: TAKE EVERY MORNING
  4. THYROXINE [Concomitant]
     Active Substance: LEVOTHYROXINE
     Indication: Thyroxine abnormal
     Dosage: TAKE EVERY NIGHT
  5. PRAVASTATIN [Concomitant]
     Active Substance: PRAVASTATIN
     Dosage: TAKE EVERY NIGHT
  6. METOPROLOL [Concomitant]
     Active Substance: METOPROLOL
     Dosage: TAKE MORNING/NIGHT

REACTIONS (3)
  - Dysgeusia [Recovered/Resolved]
  - Oral discomfort [Recovered/Resolved]
  - Dry mouth [Recovered/Resolved]
